FAERS Safety Report 16007702 (Version 1)
Quarter: 2019Q1

REPORT INFORMATION
  Report Type: Spontaneous
  Country: ES (occurrence: ES)
  Receive Date: 20190226
  Receipt Date: 20190226
  Transmission Date: 20190418
  Serious: Yes (Other)
  Sender: FDA-Public Use
  Company Number: ES-TEVA-2019-ES-1015070

PATIENT
  Age: 53 Year
  Sex: Male

DRUGS (1)
  1. IBUPROFENO 600 MG COMPRIMIDO [Suspect]
     Active Substance: IBUPROFEN
     Indication: SURGERY
     Dosage: 1 COMP/ 8H
     Route: 048
     Dates: start: 20180615, end: 20180615

REACTIONS (2)
  - Feeling hot [Recovered/Resolved]
  - Erythema [Recovered/Resolved]

NARRATIVE: CASE EVENT DATE: 20180615
